FAERS Safety Report 7961130-0 (Version None)
Quarter: 2011Q4

REPORT INFORMATION
  Report Type: 
  Country: None (occurrence: None)
  Receive Date: 20111207
  Receipt Date: 20111205
  Transmission Date: 20120403
  Serious: Yes (Hospitalization, Other)
  Sender: FDA-Public Use
  Company Number: US-PFIZER INC-2011297016

PATIENT
  Sex: Female
  Weight: 70.295 kg

DRUGS (6)
  1. FUROSEMIDE [Concomitant]
     Indication: DIURETIC THERAPY
     Dosage: 80 MG, UNK
  2. BENICAR [Suspect]
     Indication: BLOOD PRESSURE ABNORMAL
     Dosage: UNK
     Route: 048
  3. PROTONIX [Concomitant]
     Dosage: 30 MG, UNK
  4. ACTIVATED CHARCOAL [Interacting]
     Indication: GASTROINTESTINAL PAIN
     Dosage: UNK
  5. DILANTIN-125 [Interacting]
     Indication: CONVULSION
     Dosage: UNK
  6. NORCO [Concomitant]
     Indication: PAIN
     Dosage: UNK
     Route: 048

REACTIONS (3)
  - DRUG INTERACTION [None]
  - SERUM SEROTONIN DECREASED [None]
  - CONVULSION [None]
